FAERS Safety Report 8438475-3 (Version None)
Quarter: 2012Q2

REPORT INFORMATION
  Report Type: 
  Country: None (occurrence: None)
  Receive Date: 20120615
  Receipt Date: 20120611
  Transmission Date: 20120825
  Serious: Yes (Hospitalization, Other)
  Sender: FDA-Public Use
  Company Number: US-AMGEN-USASP2012036678

PATIENT
  Age: 76 Year
  Sex: Female

DRUGS (1)
  1. ENBREL [Suspect]
     Indication: PRODUCT USED FOR UNKNOWN INDICATION
     Dosage: 50 MG, 2 TIMES/WK
     Dates: start: 19920101

REACTIONS (9)
  - CHEST DISCOMFORT [None]
  - NECK PAIN [None]
  - CHEST PAIN [None]
  - HYPOKINESIA [None]
  - SMALL CELL LUNG CANCER STAGE UNSPECIFIED [None]
  - LATENT TUBERCULOSIS [None]
  - SPINAL FRACTURE [None]
  - BONE DENSITY DECREASED [None]
  - AORTIC ARTERIOSCLEROSIS [None]
